FAERS Safety Report 9738722 (Version 3)
Quarter: 2014Q2

REPORT INFORMATION
  Report Type: Spontaneous
  Country: JP (occurrence: JP)
  Receive Date: 20131209
  Receipt Date: 20140612
  Transmission Date: 20141212
  Serious: Yes (Hospitalization, Other)
  Sender: FDA-Public Use
  Company Number: JP-BRISTOL-MYERS SQUIBB COMPANY-18575688

PATIENT
  Age: 46 Year
  Sex: Female
  Weight: 60.1 kg

DRUGS (12)
  1. BYETTA PEN DISPOSABLE [Suspect]
     Indication: TYPE 2 DIABETES MELLITUS
     Route: 058
     Dates: start: 20121128
  2. METGLUCO [Concomitant]
     Indication: TYPE 2 DIABETES MELLITUS
     Dosage: TAB:27NOV2012-14DEC2012. 25DEC2012
     Route: 048
     Dates: start: 20121127
  3. BUSCOPAN [Concomitant]
     Indication: COLITIS ISCHAEMIC
     Route: 030
  4. ROPION [Concomitant]
     Indication: COLITIS ISCHAEMIC
     Route: 030
  5. DULOXETINE HCL [Concomitant]
     Route: 065
  6. PAROXETINE [Concomitant]
     Route: 065
  7. ALPRAZOLAM [Concomitant]
     Route: 065
  8. ETHYL LOFLAZEPATE [Concomitant]
     Route: 065
  9. TRAZODONE HCL [Concomitant]
     Route: 065
  10. BROTIZOLAM [Concomitant]
     Route: 065
  11. SENNOSIDE [Concomitant]
     Indication: CONSTIPATION
     Route: 048
  12. GASMOTIN [Concomitant]
     Indication: CONSTIPATION
     Dosage: 1DF=1TAB
     Route: 048

REACTIONS (3)
  - Colitis ischaemic [Recovering/Resolving]
  - Melaena [Unknown]
  - Constipation [Unknown]
